FAERS Safety Report 4883315-2 (Version None)
Quarter: 2006Q1

REPORT INFORMATION
  Report Type: 
  Country: None (occurrence: None)
  Receive Date: 20060118
  Receipt Date: 20060111
  Transmission Date: 20060701
  Serious: Yes (Death)
  Sender: FDA-Public Use
  Company Number: US-GLAXOSMITHKLINE-A0589063A

PATIENT
  Age: 44 Year
  Sex: Female
  Weight: 125.9 kg

DRUGS (6)
  1. REQUIP [Suspect]
     Dates: start: 20050101
  2. MORPHINE [Concomitant]
     Indication: BACK PAIN
     Dosage: 60MG TWICE PER DAY
     Route: 048
     Dates: start: 20000905
  3. ELAVIL [Concomitant]
     Dosage: 75MG THREE TIMES PER DAY
  4. NORCO [Concomitant]
     Indication: BACK PAIN
     Dosage: 2TAB THREE TIMES PER DAY
     Route: 048
     Dates: start: 20000808
  5. UNIRETIC [Concomitant]
     Indication: HYPERTENSION
     Route: 048
     Dates: start: 20030503
  6. AMITRIPTYLINE HCL [Concomitant]
     Indication: PAIN
     Dosage: 225MG AT NIGHT
     Route: 048
     Dates: start: 20000815

REACTIONS (3)
  - CARDIAC ARREST [None]
  - DYSPNOEA [None]
  - FALL [None]
